FAERS Safety Report 17568683 (Version 1)
Quarter: 2020Q1

REPORT INFORMATION
  Report Type: Spontaneous
  Country: CN (occurrence: CN)
  Receive Date: 20200321
  Receipt Date: 20200321
  Transmission Date: 20200409
  Serious: Yes (Other)
  Sender: FDA-Public Use
  Company Number: CN-SUN PHARMACEUTICAL INDUSTRIES LTD-2020R1-241170

PATIENT
  Age: 64 Year
  Sex: Male

DRUGS (2)
  1. OXALIPLATIN. [Suspect]
     Active Substance: OXALIPLATIN
     Indication: RETROPERITONEAL LYMPHADENOPATHY
     Dosage: UNK
     Route: 051
  2. TS-1 [Suspect]
     Active Substance: GIMERACIL\OTERACIL\TEGAFUR
     Indication: RETROPERITONEAL LYMPHADENOPATHY
     Dosage: 50 MILLIGRAM, BID
     Route: 048

REACTIONS (2)
  - Therapeutic response decreased [Unknown]
  - Disease progression [Unknown]
